FAERS Safety Report 24545387 (Version 1)
Quarter: 2024Q4

REPORT INFORMATION
  Report Type: Spontaneous
  Country: US (occurrence: None)
  Receive Date: 20241023
  Receipt Date: 20241023
  Transmission Date: 20250115
  Serious: Yes (Life-Threatening, Hospitalization)
  Sender: Public
  Company Number: None

PATIENT
  Age: 86 Year
  Sex: Female
  Weight: 87.5 kg

DRUGS (1)
  1. CAPIVASERTIB [Suspect]
     Active Substance: CAPIVASERTIB
     Indication: Hormone receptor positive HER2 negative breast cancer
     Dates: start: 20240926, end: 20241013

REACTIONS (10)
  - Nausea [None]
  - Malaise [None]
  - Rash erythematous [None]
  - Rash pruritic [None]
  - Skin abrasion [None]
  - Hypotension [None]
  - Hyperglycaemia [None]
  - Bradycardia [None]
  - Cardiogenic shock [None]
  - Erythema [None]

NARRATIVE: CASE EVENT DATE: 20241013
